FAERS Safety Report 10682796 (Version 3)
Quarter: 2016Q2

REPORT INFORMATION
  Report Type: Report from Study
  Country: US (occurrence: US)
  Receive Date: 20141230
  Receipt Date: 20160616
  Transmission Date: 20160815
  Serious: Yes (Death, Hospitalization, Other)
  Sender: FDA-Public Use
  Company Number: US-ARIAD PHARMACEUTICALS, INC-2014US004317

PATIENT

DRUGS (2)
  1. ICLUSIG [Suspect]
     Active Substance: PONATINIB
     Indication: ACUTE LYMPHOCYTIC LEUKAEMIA
     Dosage: 45 MG, QD
     Route: 048
     Dates: start: 20130905, end: 20131226
  2. ICLUSIG [Suspect]
     Active Substance: PONATINIB
     Dosage: 45 MG, QD
     Route: 048
     Dates: start: 20140325, end: 20140423

REACTIONS (8)
  - Sepsis [Unknown]
  - Multiple organ dysfunction syndrome [Fatal]
  - Lung infection [Unknown]
  - Graft versus host disease [Unknown]
  - Transplant [Unknown]
  - Acute lymphocytic leukaemia recurrent [Fatal]
  - Diabetes mellitus [Unknown]
  - Pancytopenia [Unknown]
